FAERS Safety Report 6878663-0 (Version None)
Quarter: 2010Q3

REPORT INFORMATION
  Report Type: 
  Country: None (occurrence: None)
  Receive Date: 20100728
  Receipt Date: 20100721
  Transmission Date: 20110219
  Serious: Yes (Other)
  Sender: FDA-Public Use
  Company Number: A0872594A

PATIENT
  Age: 31 Year

DRUGS (2)
  1. ALENYS [Suspect]
     Dosage: 110MCG PER DAY
     Route: 045
     Dates: start: 20100701
  2. NONE [Concomitant]

REACTIONS (1)
  - VIITH NERVE PARALYSIS [None]
